FAERS Safety Report 4912382-2 (Version None)
Quarter: 2006Q1

REPORT INFORMATION
  Report Type: 
  Country: None (occurrence: None)
  Receive Date: 20060215
  Receipt Date: 20050208
  Transmission Date: 20060701
  Serious: No
  Sender: FDA-Public Use
  Company Number: US-GLAXOSMITHKLINE-A0544497A

PATIENT
  Age: 41 Year
  Sex: Female

DRUGS (2)
  1. VALTREX [Suspect]
     Dosage: 1000MG PER DAY
     Route: 048
  2. IRON [Concomitant]
     Route: 048

REACTIONS (1)
  - ABDOMINAL PAIN [None]
